FAERS Safety Report 7747834-3 (Version None)
Quarter: 2011Q3

REPORT INFORMATION
  Report Type: 
  Country: None (occurrence: None)
  Receive Date: 20110913
  Receipt Date: 20110906
  Transmission Date: 20111222
  Serious: Yes (Life-Threatening, Other)
  Sender: FDA-Public Use
  Company Number: US-JNJFOC-20110807341

PATIENT
  Sex: Female
  Weight: 40 kg

DRUGS (12)
  1. REMICADE [Suspect]
     Route: 042
     Dates: start: 20110803
  2. ASACOL [Concomitant]
     Indication: CROHN'S DISEASE
     Route: 048
  3. ETODOLAC [Concomitant]
     Route: 065
  4. AZATHIOPRINE [Concomitant]
     Route: 065
  5. BACTRIM [Concomitant]
     Dosage: DOSE REPORTED AS 400/80
     Route: 065
  6. REMICADE [Suspect]
     Indication: CROHN'S DISEASE
     Route: 042
  7. GABAPENTIN [Concomitant]
     Route: 048
  8. MACRODANTIN [Concomitant]
     Route: 065
  9. OMEPRAZOLE [Concomitant]
     Route: 065
  10. LUPRON [Concomitant]
     Route: 030
  11. PREDNISONE [Concomitant]
     Indication: CROHN'S DISEASE
     Route: 048
  12. SOMATROPIN [Concomitant]
     Indication: GROWTH HORMONE DEFICIENCY
     Route: 058

REACTIONS (1)
  - ASTROCYTOMA [None]
